FAERS Safety Report 10937959 (Version 2)
Quarter: 2015Q2

REPORT INFORMATION
  Report Type: Spontaneous
  Country: US (occurrence: US)
  Receive Date: 20150321
  Receipt Date: 20150525
  Transmission Date: 20150821
  Serious: No
  Sender: FDA-Public Use
  Company Number: US-JNJFOC-20140317134

PATIENT
  Sex: Female
  Weight: 112.49 kg

DRUGS (9)
  1. STELARA [Suspect]
     Active Substance: USTEKINUMAB
     Indication: PSORIASIS
     Route: 058
     Dates: start: 20130702
  2. LOVASTATIN. [Concomitant]
     Active Substance: LOVASTATIN
     Route: 065
  3. ASPIRIN. [Concomitant]
     Active Substance: ASPIRIN
     Route: 065
  4. METOPROLOL [Concomitant]
     Active Substance: METOPROLOL
     Route: 065
  5. NIACIN. [Concomitant]
     Active Substance: NIACIN
     Route: 065
  6. BUPROPION [Concomitant]
     Active Substance: BUPROPION
     Route: 065
  7. VENLAFAXINE [Concomitant]
     Active Substance: VENLAFAXINE HYDROCHLORIDE
     Route: 065
  8. FUROSEMIDE. [Concomitant]
     Active Substance: FUROSEMIDE
     Route: 065
  9. LISINOPRIL. [Concomitant]
     Active Substance: LISINOPRIL
     Route: 065

REACTIONS (3)
  - Tooth disorder [Unknown]
  - Gingivitis [Unknown]
  - Dental caries [Unknown]

NARRATIVE: CASE EVENT DATE: 2013
